FAERS Safety Report 5788102-9 (Version None)
Quarter: 2008Q2

REPORT INFORMATION
  Report Type: 
  Country: None (occurrence: None)
  Receive Date: 20080625
  Receipt Date: 20080619
  Transmission Date: 20081010
  Serious: Yes (Hospitalization)
  Sender: FDA-Public Use
  Company Number: US-BOEHRINGER INGELHEIM GMBH, GERMANY-2008-BP-09585RO

PATIENT
  Age: 52 Year
  Sex: Male
  Weight: 77 kg

DRUGS (13)
  1. CLOTRIMAZOLE [Suspect]
  2. TEMODAR [Suspect]
     Indication: GLIOBLASTOMA MULTIFORME
     Route: 048
     Dates: start: 20080317, end: 20080428
  3. DILANTIN [Suspect]
     Dates: end: 20080421
  4. KEPPRA [Suspect]
     Indication: PROPHYLAXIS
     Dates: start: 20080423
  5. DECADRON [Suspect]
     Dates: end: 20080415
  6. COREG [Suspect]
  7. PREVACID [Suspect]
  8. SYNTHROID [Suspect]
  9. ZOCOR [Suspect]
  10. ZETIA [Suspect]
  11. HYDROXYZINE [Suspect]
  12. PERCOCET [Suspect]
  13. ZOFRAN [Suspect]

REACTIONS (6)
  - ABDOMINAL PAIN [None]
  - HYPERSENSITIVITY [None]
  - RASH ERYTHEMATOUS [None]
  - RASH PRURITIC [None]
  - RENAL INFARCT [None]
  - SPLENIC INFARCTION [None]
